FAERS Safety Report 5946044-X (Version None)
Quarter: 2008Q4

REPORT INFORMATION
  Report Type: 
  Country: None (occurrence: None)
  Receive Date: 20081110
  Receipt Date: 20081103
  Transmission Date: 20090506
  Serious: Yes (Hospitalization, Other)
  Sender: FDA-Public Use
  Company Number: DE-AMGEN-UK316767

PATIENT
  Age: 43 Year
  Sex: Female

DRUGS (5)
  1. NEULASTA [Suspect]
     Indication: CHEMOTHERAPY
     Route: 065
  2. FLUOROURACIL [Concomitant]
     Route: 065
  3. EPIRUBICIN [Concomitant]
     Route: 065
  4. CYCLOPHOSPHAMIDE [Concomitant]
     Route: 065
  5. ASCORBIC ACID [Concomitant]
     Route: 042

REACTIONS (2)
  - CEREBROVASCULAR ACCIDENT [None]
  - WHITE BLOOD CELL COUNT INCREASED [None]
